FAERS Safety Report 22712796 (Version 8)
Quarter: 2024Q1

REPORT INFORMATION
  Report Type: Spontaneous
  Country: US (occurrence: US)
  Receive Date: 20230717
  Receipt Date: 20240129
  Transmission Date: 20240409
  Serious: No
  Sender: FDA-Public Use
  Company Number: US-PFIZER INC-PV202300119248

PATIENT
  Age: 41 Year
  Sex: Female
  Weight: 72.562 kg

DRUGS (4)
  1. PREMARIN [Suspect]
     Active Substance: ESTROGENS, CONJUGATED
     Indication: Postmenopause
     Dosage: UNK (0.625)
     Dates: start: 2006, end: 20231128
  2. PREMARIN [Suspect]
     Active Substance: ESTROGENS, CONJUGATED
     Indication: Menopause
  3. PREMARIN [Suspect]
     Active Substance: ESTROGENS, CONJUGATED
     Indication: Postmenopause
     Dosage: UNK
     Dates: start: 2006, end: 20231128
  4. PREMARIN [Suspect]
     Active Substance: ESTROGENS, CONJUGATED
     Indication: Menopause

REACTIONS (4)
  - Migraine [Unknown]
  - Product dose omission issue [Unknown]
  - Emotional disorder [Unknown]
  - Influenza like illness [Unknown]

NARRATIVE: CASE EVENT DATE: 20060101
